FAERS Safety Report 5402525-9 (Version None)
Quarter: 2007Q3

REPORT INFORMATION
  Report Type: 
  Country: None (occurrence: None)
  Receive Date: 20070801
  Receipt Date: 20061002
  Transmission Date: 20080115
  Serious: No
  Sender: FDA-Public Use
  Company Number: A0622157A

PATIENT
  Sex: Male

DRUGS (3)
  1. IMITREX [Suspect]
     Indication: CLUSTER HEADACHE
     Route: 048
  2. IMITREX [Suspect]
     Route: 058
  3. IMITREX [Suspect]
     Route: 045

REACTIONS (1)
  - DRUG EFFECT DECREASED [None]
